FAERS Safety Report 7972608-8 (Version None)
Quarter: 2011Q4

REPORT INFORMATION
  Report Type: 
  Country: None (occurrence: None)
  Receive Date: 20111213
  Receipt Date: 20111202
  Transmission Date: 20120403
  Serious: Yes (Hospitalization)
  Sender: FDA-Public Use
  Company Number: US-BAYER-201033292NA

PATIENT
  Age: 26 Year
  Sex: Female
  Weight: 62 kg

DRUGS (11)
  1. ZANTAC [Concomitant]
  2. ALIMENTARY TRACT AND METABOLISM [Concomitant]
  3. SOMA [Concomitant]
  4. MULTI-VITAMIN [Concomitant]
     Indication: VITAMIN SUPPLEMENTATION
     Dosage: UNK UNK, QD
  5. YAZ [Suspect]
     Indication: ORAL CONTRACEPTION
     Dosage: UNK UNK, QD
     Route: 048
     Dates: start: 20040101, end: 20090101
  6. IBUPROFEN [Concomitant]
     Dosage: UNK UNK, PRN
  7. ALIMENTARY TRACT AND METABOLISM [Concomitant]
  8. YASMIN [Suspect]
     Route: 048
  9. DROSPIRENONE AND ETHINYL ESTRADIOL [Suspect]
     Indication: ORAL CONTRACEPTION
     Dosage: UNK UNK, QD
     Route: 048
     Dates: start: 20090101, end: 20090101
  10. PEPCID AC [Concomitant]
  11. BISMUTH SUBSALICYLATE [Concomitant]

REACTIONS (4)
  - PULMONARY EMBOLISM [None]
  - CHOLECYSTITIS CHRONIC [None]
  - PAIN [None]
  - CHOLECYSTECTOMY [None]
